FAERS Safety Report 10133596 (Version 1)
Quarter: 2014Q2

REPORT INFORMATION
  Report Type: Spontaneous
  Country: US (occurrence: US)
  Receive Date: 20140428
  Receipt Date: 20140428
  Transmission Date: 20141212
  Serious: Yes (Other)
  Sender: FDA-Public Use
  Company Number: US-SA-2014SA050853

PATIENT
  Age: 64 Year
  Sex: Male

DRUGS (1)
  1. BCG FOR IMMUNOTHERAPY [Suspect]
     Indication: BLADDER CANCER
     Route: 043

REACTIONS (6)
  - Aortic aneurysm [Unknown]
  - Back pain [Unknown]
  - Psoas abscess [Unknown]
  - Neuropathy peripheral [Unknown]
  - Cataract [Unknown]
  - Tendonitis [Unknown]
